FAERS Safety Report 6860319-1 (Version None)
Quarter: 2010Q3

REPORT INFORMATION
  Report Type: 
  Country: None (occurrence: None)
  Receive Date: 20100719
  Receipt Date: 20100719
  Transmission Date: 20110219
  Serious: Yes (Other)
  Sender: FDA-Public Use
  Company Number: None

PATIENT
  Age: 84 Year
  Sex: Female
  Weight: 54.5 kg

DRUGS (1)
  1. POLYETHYLENE GLYCOL-3350 AND ELECTROLYTES [Suspect]
     Indication: COLONOSCOPY
     Route: 048
     Dates: start: 20090302

REACTIONS (1)
  - DIARRHOEA [None]
